FAERS Safety Report 21219405 (Version 1)
Quarter: 2022Q3

REPORT INFORMATION
  Report Type: Spontaneous
  Country: US (occurrence: US)
  Receive Date: 20220817
  Receipt Date: 20220817
  Transmission Date: 20221027
  Serious: Yes (Other)
  Sender: FDA-Public Use
  Company Number: US-CELLTRION INC.-2022US012898

PATIENT

DRUGS (3)
  1. INFLIXIMAB [Suspect]
     Active Substance: INFLIXIMAB
     Indication: Colitis ulcerative
     Dosage: FIRST INFLIXIMAB INFUSION (DOSED AT 5MG/KG)
  2. INFLIXIMAB [Suspect]
     Active Substance: INFLIXIMAB
     Dosage: CONTINUE INFLIXIMAB INFUSIONS EVERY TWO WEEKS.
  3. INFLIXIMAB [Suspect]
     Active Substance: INFLIXIMAB
     Dosage: REGULAR INFLIXIMAB INFUSIONS EVERY SIX WEEKS UNTIL 28 WEEKS OF GESTATION

REACTIONS (3)
  - Pre-eclampsia [Unknown]
  - Maternal exposure during pregnancy [Unknown]
  - Off label use [Unknown]
